FAERS Safety Report 5361529-5 (Version None)
Quarter: 2007Q2

REPORT INFORMATION
  Report Type: 
  Country: None (occurrence: None)
  Receive Date: 20070619
  Receipt Date: 20070612
  Transmission Date: 20071010
  Serious: Yes (Disabling)
  Sender: FDA-Public Use
  Company Number: PHBS2007LT09843

PATIENT
  Age: 50 Year
  Sex: Female

DRUGS (2)
  1. ANASTROZOLE [Concomitant]
     Dosage: 1 MG, UNK
     Dates: start: 20060101
  2. ZOMETA [Suspect]
     Indication: METASTASES TO BONE
     Dosage: 4 MG, QMO
     Route: 042
     Dates: start: 20060401

REACTIONS (1)
  - OSTEONECROSIS [None]
